FAERS Safety Report 26055262 (Version 1)
Quarter: 2025Q4

REPORT INFORMATION
  Report Type: Spontaneous
  Country: JP (occurrence: JP)
  Receive Date: 20251117
  Receipt Date: 20251117
  Transmission Date: 20260117
  Serious: Yes (Life-Threatening, Hospitalization, Other)
  Sender: PFIZER
  Company Number: JP-PFIZER INC-PV202500105865

PATIENT
  Age: 51 Year
  Sex: Male

DRUGS (12)
  1. VASOPRESSIN [Suspect]
     Active Substance: VASOPRESSIN
     Indication: Circulatory collapse
     Dosage: 0.02 UNIT/KG/H
  2. VASOPRESSIN [Suspect]
     Active Substance: VASOPRESSIN
     Dosage: 0.01 UNIT/KG/H
  3. HYDROCORTISONE [Suspect]
     Active Substance: HYDROCORTISONE
     Indication: Circulatory collapse
     Dosage: 50 MG, 4X/DAY, EVERY 6 HOURS
  4. LACTATED RINGERS SOLUTION [Suspect]
     Active Substance: CALCIUM CHLORIDE\POTASSIUM CHLORIDE\SODIUM CHLORIDE\SODIUM LACTATE
     Indication: Distributive shock
     Dosage: UNK
     Route: 042
  5. NOREPINEPHRINE [Suspect]
     Active Substance: NOREPINEPHRINE
     Indication: Distributive shock
     Dosage: 0.08 UG/KG/MIN
     Route: 042
  6. NOREPINEPHRINE [Suspect]
     Active Substance: NOREPINEPHRINE
     Indication: Septic shock
     Dosage: 0.12 UG/KG/MIN
     Route: 042
  7. NOREPINEPHRINE [Suspect]
     Active Substance: NOREPINEPHRINE
     Indication: Circulatory collapse
     Dosage: 0.20 UG/KG/MIN
     Route: 042
  8. NOREPINEPHRINE [Suspect]
     Active Substance: NOREPINEPHRINE
     Dosage: 0.25 UG/KG/MIN
     Route: 042
  9. NOREPINEPHRINE [Suspect]
     Active Substance: NOREPINEPHRINE
     Dosage: 0.15 UG/KG/MIN
     Route: 042
  10. NOREPINEPHRINE [Suspect]
     Active Substance: NOREPINEPHRINE
     Dosage: 0.10 UG/KG/MIN
     Route: 042
  11. NOREPINEPHRINE [Suspect]
     Active Substance: NOREPINEPHRINE
     Dosage: 0.05 UG/KG/MIN
     Route: 042
  12. MEROPENEM [Concomitant]
     Active Substance: MEROPENEM
     Indication: Pneumonia
     Dosage: 1 G, 2X/DAY, Q12H

REACTIONS (1)
  - Drug ineffective [Unknown]
